FAERS Safety Report 10595532 (Version 1)
Quarter: 2014Q4

REPORT INFORMATION
  Report Type: Spontaneous
  Country: JP (occurrence: None)
  Receive Date: 20141118
  Receipt Date: 20141118
  Transmission Date: 20150529
  Serious: No
  Sender: FDA-Public Use
  Company Number: JP2014JPN018810

PATIENT
  Age: 79 Year
  Sex: Male

DRUGS (4)
  1. MINIPRESS (PRAZOSIN HYDROCHLORIDE) [Concomitant]
  2. PAXIL CR [Suspect]
     Active Substance: PAROXETINE HYDROCHLORIDE
     Indication: DEPRESSION
     Route: 048
     Dates: start: 20141028, end: 20141031
  3. ETIZOLAM (ETIZOLAM) [Concomitant]
  4. ZACRAS COMBINATION TABLETS LD (AMLODIPINE BESILATE [Concomitant]

REACTIONS (3)
  - Hallucination, auditory [None]
  - Hallucination [None]
  - Abnormal behaviour [None]

NARRATIVE: CASE EVENT DATE: 20141030
